FAERS Safety Report 16579754 (Version 2)
Quarter: 2019Q3

REPORT INFORMATION
  Report Type: Spontaneous
  Country: IL (occurrence: IL)
  Receive Date: 20190716
  Receipt Date: 20190816
  Transmission Date: 20191004
  Serious: Yes (Death, Other)
  Sender: FDA-Public Use
  Company Number: IL-AMGEN-ISRSP2019110351

PATIENT
  Age: 29 Month
  Sex: Female

DRUGS (1)
  1. BLINATUMOMAB [Suspect]
     Active Substance: BLINATUMOMAB
     Indication: ACUTE LYMPHOCYTIC LEUKAEMIA
     Dosage: UNK
     Route: 065

REACTIONS (7)
  - Cardiac failure [Recovered/Resolved]
  - Candida sepsis [Recovered/Resolved]
  - Respiratory moniliasis [Recovered/Resolved]
  - Pneumococcal sepsis [Fatal]
  - Hepatosplenic candidiasis [Recovered/Resolved]
  - Enterobacter sepsis [Recovered/Resolved]
  - Bone marrow failure [Recovered/Resolved]
